FAERS Safety Report 5708869-5 (Version None)
Quarter: 2008Q2

REPORT INFORMATION
  Report Type: 
  Country: None (occurrence: None)
  Receive Date: 20080416
  Receipt Date: 20080408
  Transmission Date: 20081010
  Serious: Yes (Hospitalization)
  Sender: FDA-Public Use
  Company Number: 2007US001717

PATIENT
  Age: 4 Year
  Sex: Male
  Weight: 24.7 kg

DRUGS (12)
  1. PROGRAF [Suspect]
     Indication: RENAL TRANSPLANT
     Dates: start: 20060521
  2. ZENAPAX [Suspect]
     Indication: RENAL TRANSPLANT
     Dosage: 14.8 MG, WEEKLY, IV NOS
     Route: 042
     Dates: start: 20060521, end: 20060521
  3. ZENAPAX [Suspect]
     Indication: RENAL TRANSPLANT
     Dosage: 14.8 MG, WEEKLY, IV NOS
     Route: 042
     Dates: start: 20060605, end: 20060605
  4. ZENAPAX [Suspect]
     Indication: RENAL TRANSPLANT
     Dosage: 14.8 MG, WEEKLY, IV NOS
     Route: 042
     Dates: start: 20060620, end: 20060620
  5. ZENAPAX [Suspect]
     Indication: RENAL TRANSPLANT
     Dosage: 14.8 MG, WEEKLY, IV NOS
     Route: 042
     Dates: start: 20060703, end: 20060703
  6. ZENAPAX [Suspect]
     Indication: RENAL TRANSPLANT
     Dosage: 14.8 MG, WEEKLY, IV NOS
     Route: 042
     Dates: start: 20060718, end: 20060718
  7. CELLCEPT [Concomitant]
  8. PREDNISOLONE ACETATE [Concomitant]
  9. NORVASC [Concomitant]
  10. REGLAN [Concomitant]
  11. OMEPRAZOLE [Concomitant]
  12. ACYCLOVIR [Concomitant]

REACTIONS (4)
  - BLOOD GLUCOSE INCREASED [None]
  - PYREXIA [None]
  - RASH [None]
  - SKIN LESION [None]
